FAERS Safety Report 7478043-3 (Version None)
Quarter: 2011Q2

REPORT INFORMATION
  Report Type: 
  Country: None (occurrence: None)
  Receive Date: 20110513
  Receipt Date: 20110502
  Transmission Date: 20111010
  Serious: Yes (Hospitalization)
  Sender: FDA-Public Use
  Company Number: US-AMGEN-USASP2011022782

PATIENT
  Age: 66 Year
  Sex: Male

DRUGS (2)
  1. ENBREL [Suspect]
     Indication: PSORIASIS
  2. ENBREL [Suspect]
     Indication: PSORIATIC ARTHROPATHY
     Dosage: 50 MG, QWK
     Dates: start: 20040301

REACTIONS (8)
  - ERUCTATION [None]
  - INGUINAL HERNIA [None]
  - PSORIASIS [None]
  - PSORIATIC ARTHROPATHY [None]
  - NAUSEA [None]
  - DIARRHOEA [None]
  - THERAPEUTIC RESPONSE DECREASED [None]
  - VOMITING [None]
